FAERS Safety Report 20356605 (Version 1)
Quarter: 2022Q1

REPORT INFORMATION
  Report Type: Spontaneous
  Country: US (occurrence: None)
  Receive Date: 20220120
  Receipt Date: 20220120
  Transmission Date: 20220423
  Serious: No
  Sender: FDA-Public Use
  Company Number: None

PATIENT
  Age: 54 Year
  Sex: Female

DRUGS (1)
  1. TALTZ [Suspect]
     Active Substance: IXEKIZUMAB
     Indication: Ankylosing spondylitis
     Dosage: FREQUENCY : ONCE;  FOR LOADING DOSE?
     Route: 058
     Dates: start: 20220116, end: 20220116

REACTIONS (4)
  - Sneezing [None]
  - Vomiting [None]
  - Pharyngeal swelling [None]
  - Hypersensitivity [None]

NARRATIVE: CASE EVENT DATE: 20220116
